FAERS Safety Report 11626629 (Version 1)
Quarter: 2015Q4

REPORT INFORMATION
  Report Type: Spontaneous
  Country: US (occurrence: None)
  Receive Date: 20151013
  Receipt Date: 20151013
  Transmission Date: 20160304
  Serious: Yes (Other)
  Sender: FDA-Public Use
  Company Number: ADR-2015-01093

PATIENT
  Age: 39 Year
  Sex: Female
  Weight: 101 kg

DRUGS (1)
  1. LIORESAL [Suspect]
     Active Substance: BACLOFEN
     Dosage: 160MCG/DAY

REACTIONS (2)
  - Pain [None]
  - Therapeutic response decreased [None]
